FAERS Safety Report 4715822-7 (Version None)
Quarter: 2005Q3

REPORT INFORMATION
  Report Type: 
  Country: None (occurrence: None)
  Receive Date: 20050713
  Receipt Date: 20050705
  Transmission Date: 20060218
  Serious: Yes (Other)
  Sender: FDA-Public Use
  Company Number: 2005-07-0125

PATIENT
  Age: 65 Year
  Sex: Female

DRUGS (1)
  1. PEG-INTRON [Suspect]
     Dosage: 150 MCG SUBCUTANEOUS
     Route: 058
     Dates: start: 20050401

REACTIONS (5)
  - DEVICE FAILURE [None]
  - DRUG DOSE OMISSION [None]
  - PHARMACEUTICAL PRODUCT COMPLAINT [None]
  - RIB FRACTURE [None]
  - ROAD TRAFFIC ACCIDENT [None]
